FAERS Safety Report 10571219 (Version 2)
Quarter: 2014Q4

REPORT INFORMATION
  Report Type: Spontaneous
  Country: BD (occurrence: BD)
  Receive Date: 20141107
  Receipt Date: 20141107
  Transmission Date: 20150529
  Serious: Yes (Other)
  Sender: FDA-Public Use
  Company Number: PHHY2014BD124149

PATIENT
  Age: 51 Year
  Sex: Male
  Weight: 89 kg

DRUGS (9)
  1. SEBIVO [Suspect]
     Active Substance: TELBIVUDINE
     Dosage: 1 TABLET DAILY
     Route: 048
     Dates: start: 20140402, end: 20140920
  2. VITAMIN B 6 [Concomitant]
     Indication: PRODUCT USED FOR UNKNOWN INDICATION
     Dosage: UNK, TID
     Route: 048
     Dates: start: 20140402, end: 20140920
  3. VITAMIN B-1 [Concomitant]
     Indication: PRODUCT USED FOR UNKNOWN INDICATION
     Dosage: UNK, TID
     Route: 048
     Dates: start: 20140402, end: 20140920
  4. VITAMIN B 2 [Concomitant]
     Indication: PRODUCT USED FOR UNKNOWN INDICATION
     Dosage: UNK, TID
     Route: 048
     Dates: start: 20140402, end: 20140920
  5. CALCIUM + VITAMIN D [Concomitant]
     Active Substance: CALCIUM\VITAMIN D
     Indication: BLOOD CALCIUM ABNORMAL
     Dosage: UNK, QD
     Route: 048
     Dates: start: 20140402, end: 20140920
  6. LOSARTAN POTASSIUM. [Concomitant]
     Active Substance: LOSARTAN POTASSIUM
     Indication: HYPERTENSION
     Dosage: UNK, QD
     Route: 048
  7. SEBIVO [Suspect]
     Active Substance: TELBIVUDINE
     Indication: CHRONIC HEPATITIS B
     Dosage: UNK
     Route: 048
     Dates: start: 201403
  8. FIBROSOL [Concomitant]
     Indication: HEPATIC FUNCTION ABNORMAL
     Dosage: UNK, QD
     Route: 048
     Dates: start: 20140402
  9. ATORVASTATIN [Concomitant]
     Active Substance: ATORVASTATIN
     Indication: PRODUCT USED FOR UNKNOWN INDICATION
     Dosage: UNK
     Route: 065

REACTIONS (3)
  - Hepatocellular carcinoma [Not Recovered/Not Resolved]
  - Alanine aminotransferase increased [Unknown]
  - Concomitant disease aggravated [Not Recovered/Not Resolved]

NARRATIVE: CASE EVENT DATE: 20140419
